FAERS Safety Report 11737770 (Version 11)
Quarter: 2017Q4

REPORT INFORMATION
  Report Type: Spontaneous
  Country: US (occurrence: US)
  Receive Date: 20151113
  Receipt Date: 20171013
  Transmission Date: 20180320
  Serious: Yes (Congenital Anomaly, Other)
  Sender: FDA-Public Use
  Company Number: PHEH2015US023536

PATIENT
  Sex: Female

DRUGS (4)
  1. ONDANSETRON [Suspect]
     Active Substance: ONDANSETRON
     Indication: FOETAL EXPOSURE DURING PREGNANCY
     Route: 064
  2. ONDANSETRON DR REDDY [Suspect]
     Active Substance: ONDANSETRON
     Indication: FOETAL EXPOSURE DURING PREGNANCY
     Dosage: MOTHER DOSE: 4 MG 1 TO 2 TIMES DAILY
     Route: 064
  3. ZOFRAN [Suspect]
     Active Substance: ONDANSETRON HYDROCHLORIDE
     Indication: FOETAL EXPOSURE DURING PREGNANCY
     Dosage: MOTHER DOSE FREQUENCY: AS NEEDED
     Route: 064
  4. ONDANSETRON [Suspect]
     Active Substance: ONDANSETRON
     Indication: FOETAL EXPOSURE DURING PREGNANCY
     Dosage: MOTHER DOSE: 4 MG 1 TO 2 TIMES DAILY
     Route: 064

REACTIONS (20)
  - Congenital anomaly [Unknown]
  - Patent ductus arteriosus [Unknown]
  - Injury [Unknown]
  - Cardiac murmur [Unknown]
  - Inguinal hernia [Unknown]
  - Malnutrition [Unknown]
  - Influenza [Unknown]
  - Diarrhoea [Unknown]
  - Anaemia neonatal [Not Recovered/Not Resolved]
  - Foetal exposure during pregnancy [Unknown]
  - Atrial septal defect [Unknown]
  - Emotional distress [Unknown]
  - Anxiety [Unknown]
  - Neonatal respiratory distress syndrome [Recovered/Resolved]
  - Gastrooesophageal reflux disease [Unknown]
  - Exomphalos [Unknown]
  - Anhedonia [Unknown]
  - Multiple congenital abnormalities [Unknown]
  - Pain [Unknown]
  - Otitis media acute [Unknown]
